FAERS Safety Report 15569432 (Version 1)
Quarter: 2018Q4

REPORT INFORMATION
  Report Type: Report from Study
  Country: US (occurrence: US)
  Receive Date: 20181031
  Receipt Date: 20181031
  Transmission Date: 20190205
  Serious: Yes (Hospitalization)
  Sender: FDA-Public Use
  Company Number: US-BAYER-2018-198487

PATIENT
  Age: 50 Year
  Sex: Female
  Weight: 126.98 kg

DRUGS (3)
  1. ADEMPAS [Suspect]
     Active Substance: RIOCIGUAT
     Indication: PULMONARY ARTERIAL HYPERTENSION
     Dosage: 1.0 MG, TID
     Route: 048
  2. DILTIAZEM. [Concomitant]
     Active Substance: DILTIAZEM
  3. ADEMPAS [Suspect]
     Active Substance: RIOCIGUAT
     Indication: PULMONARY ARTERIAL HYPERTENSION
     Dosage: UNK
     Route: 048
     Dates: start: 20170531

REACTIONS (2)
  - Hospitalisation [Unknown]
  - Fatigue [Unknown]

NARRATIVE: CASE EVENT DATE: 201809
